FAERS Safety Report 12115465 (Version 1)
Quarter: 2016Q1

REPORT INFORMATION
  Report Type: Spontaneous
  Country: US (occurrence: US)
  Receive Date: 20160225
  Receipt Date: 20160225
  Transmission Date: 20160526
  Serious: No
  Sender: FDA-Public Use
  Company Number: US-MYLANLABS-2015M1031313

PATIENT
  Age: 45 Year
  Sex: Female
  Weight: 58.5 kg

DRUGS (1)
  1. ALPRAZOLAM TABLETS, USP [Suspect]
     Active Substance: ALPRAZOLAM
     Indication: ANXIETY
     Dosage: 0.5 MG, HS
     Route: 048
     Dates: start: 20150909, end: 20150913

REACTIONS (2)
  - Abdominal pain [Recovered/Resolved]
  - Reaction to drug excipients [Recovered/Resolved]

NARRATIVE: CASE EVENT DATE: 20150909
